FAERS Safety Report 16373231 (Version 2)
Quarter: 2019Q2

REPORT INFORMATION
  Report Type: Spontaneous
  Country: CN (occurrence: CN)
  Receive Date: 20190530
  Receipt Date: 20190605
  Transmission Date: 20190711
  Serious: Yes (Other)
  Sender: FDA-Public Use
  Company Number: CN-PFIZER INC-2019228874

PATIENT
  Age: 53 Year
  Sex: Female

DRUGS (6)
  1. ROPIVACAINE. [Suspect]
     Active Substance: ROPIVACAINE HYDROCHLORIDE
     Indication: CANCER PAIN
     Dosage: 0.2 ML, UNK (CONTINUOUS INFUSION AT 0.2 ML/H, 0.2ML BOLUS INJECTION WITH A 2-HOURS LOCKOUT INTERVAL)
     Route: 040
     Dates: start: 2016
  2. MORPHINE SULFATE. [Suspect]
     Active Substance: MORPHINE SULFATE
     Dosage: 2 ML, UNK (CONTINUOUS INFUSION RATE BY 1)
     Route: 040
     Dates: start: 2016
  3. ROPIVACAINE. [Suspect]
     Active Substance: ROPIVACAINE HYDROCHLORIDE
     Dosage: 2 ML, UNK (CONTINUOUS INFUSION RATE BY 1)
     Route: 040
     Dates: start: 2016
  4. MORPHINE SULFATE. [Suspect]
     Active Substance: MORPHINE SULFATE
     Indication: CANCER PAIN
     Dosage: 0.2 ML, UNK (CONTINUOUS INFUSION AT 0.2 ML/H, 0.2ML BOLUS INJECTION WITH A 2-HOURS LOCKOUT INTERVAL)
     Route: 040
     Dates: start: 2016
  5. MORPHINE SULFATE. [Suspect]
     Active Substance: MORPHINE SULFATE
     Dosage: 12 MG, UNK
     Route: 037
     Dates: start: 2016, end: 2016
  6. ROPIVACAINE. [Suspect]
     Active Substance: ROPIVACAINE HYDROCHLORIDE
     Dosage: 6 MG, UNK
     Route: 037
     Dates: start: 2016, end: 2016

REACTIONS (4)
  - Product administration error [Unknown]
  - Hypoaesthesia [Unknown]
  - Myoclonus [Recovered/Resolved]
  - Muscular weakness [Unknown]

NARRATIVE: CASE EVENT DATE: 2016
